FAERS Safety Report 8338306-6 (Version None)
Quarter: 2012Q2

REPORT INFORMATION
  Report Type: 
  Country: None (occurrence: None)
  Receive Date: 20120504
  Receipt Date: 20120424
  Transmission Date: 20120825
  Serious: Yes (Death, Hospitalization, Other)
  Sender: FDA-Public Use
  Company Number: BE-ACTELION-A-CH2012-64595

PATIENT
  Sex: Female
  Weight: 45 kg

DRUGS (4)
  1. TRACLEER [Suspect]
     Indication: PULMONARY ARTERIAL HYPERTENSION
     Dosage: 62.5 MG, BID
     Route: 048
     Dates: start: 20050228, end: 20080915
  2. ASPIRIN [Suspect]
     Dosage: 100 MG, OD
  3. TRACLEER [Suspect]
     Dosage: 31.25 MG, BID
     Route: 048
     Dates: start: 20050216, end: 20050227
  4. REVATIO [Concomitant]
     Dosage: 20 MG, TID

REACTIONS (11)
  - GENERAL ANAESTHESIA [None]
  - SYNCOPE [None]
  - GASTROINTESTINAL HAEMORRHAGE [None]
  - CARDIAC ARREST [None]
  - HAEMOPTYSIS [None]
  - HYPERTENSIVE CRISIS [None]
  - HYPOXIA [None]
  - FAECAL VOMITING [None]
  - HAEMATEMESIS [None]
  - ABDOMINAL PAIN UPPER [None]
  - DIARRHOEA [None]
